FAERS Safety Report 6986770-7 (Version None)
Quarter: 2010Q3

REPORT INFORMATION
  Report Type: 
  Country: None (occurrence: None)
  Receive Date: 20100915
  Receipt Date: 20090803
  Transmission Date: 20110219
  Serious: No
  Sender: FDA-Public Use
  Company Number: US-WYE-H10438509

PATIENT
  Sex: Female
  Weight: 50.85 kg

DRUGS (7)
  1. PRISTIQ [Suspect]
     Indication: SOCIAL PHOBIA
     Route: 048
     Dates: start: 20090101, end: 20090701
  2. PRISTIQ [Suspect]
     Route: 048
     Dates: start: 20090701, end: 20090730
  3. SOMA [Concomitant]
  4. FOSAMAX [Concomitant]
  5. TEMAZEPAM [Concomitant]
  6. PERCOCET [Concomitant]
  7. VICODIN [Concomitant]

REACTIONS (6)
  - DRY MOUTH [None]
  - NAUSEA [None]
  - PRURITUS [None]
  - RASH MACULO-PAPULAR [None]
  - SCAB [None]
  - SKIN INFECTION [None]
